FAERS Safety Report 25378898 (Version 1)
Quarter: 2025Q2

REPORT INFORMATION
  Report Type: Spontaneous
  Country: US (occurrence: None)
  Receive Date: 20250530
  Receipt Date: 20250530
  Transmission Date: 20250717
  Serious: Yes (Other)
  Sender: BANNER
  Company Number: US-PTA-006075

PATIENT
  Age: 55 Year
  Sex: Female

DRUGS (3)
  1. IBUPROFEN [Suspect]
     Active Substance: IBUPROFEN
     Indication: Pyrexia
  2. COLCHICINE [Suspect]
     Active Substance: COLCHICINE
     Indication: Inflammatory marker increased
  3. RILONACEPT [Suspect]
     Active Substance: RILONACEPT
     Indication: Pericarditis

REACTIONS (4)
  - Pericarditis [Unknown]
  - Off label use [Unknown]
  - Disease progression [Unknown]
  - Drug ineffective for unapproved indication [Unknown]
